FAERS Safety Report 12037556 (Version 1)
Quarter: 2016Q1

REPORT INFORMATION
  Report Type: Spontaneous
  Country: US (occurrence: None)
  Receive Date: 20160205
  Receipt Date: 20160205
  Transmission Date: 20160526
  Serious: No
  Sender: FDA-Public Use
  Company Number: None

PATIENT
  Age: 54 Year
  Sex: Female

DRUGS (4)
  1. MESTINON [Concomitant]
     Active Substance: PYRIDOSTIGMINE BROMIDE
  2. SULINDAC. [Concomitant]
     Active Substance: SULINDAC
  3. PREDNISONE. [Concomitant]
     Active Substance: PREDNISONE
  4. ENBREL [Suspect]
     Active Substance: ETANERCEPT
     Indication: RHEUMATOID ARTHRITIS
     Route: 058
     Dates: start: 20130111

REACTIONS (2)
  - Post procedural infection [None]
  - Skin cancer [None]

NARRATIVE: CASE EVENT DATE: 20160203
